FAERS Safety Report 9648165 (Version 1)
Quarter: 2013Q4

REPORT INFORMATION
  Report Type: Report from Study
  Country: MX (occurrence: MX)
  Receive Date: 20131028
  Receipt Date: 20131028
  Transmission Date: 20140711
  Serious: Yes (Other)
  Sender: FDA-Public Use
  Company Number: PHHY2013MX120364

PATIENT
  Age: 68 Year
  Sex: Female

DRUGS (6)
  1. GALVUS MET [Suspect]
     Indication: DIABETES MELLITUS
     Dosage: 1 DF (850 OF MET AND 50 OF VILDA), QD
     Route: 048
     Dates: start: 201210, end: 201301
  2. GALVUS MET [Suspect]
     Dosage: 0.5 DF (850 OF MET AND 50 OF VILDA), QD
     Route: 048
     Dates: start: 201301
  3. ACLASTA [Suspect]
     Indication: OSTEOPENIA
     Dosage: 1 DF, UNK
     Route: 042
     Dates: start: 2013
  4. REDEVANT [Concomitant]
  5. ENALADIL [Concomitant]
  6. AMARYL [Concomitant]

REACTIONS (3)
  - Fall [Unknown]
  - Upper limb fracture [Not Recovered/Not Resolved]
  - Pain [Unknown]
